FAERS Safety Report 16068750 (Version 1)
Quarter: 2019Q1

REPORT INFORMATION
  Report Type: Report from Study
  Country: TR (occurrence: TR)
  Receive Date: 20190313
  Receipt Date: 20190313
  Transmission Date: 20190418
  Serious: Yes (Hospitalization, Other)
  Sender: FDA-Public Use
  Company Number: TR-ALEXION-A201606353

PATIENT
  Age: 5 Month
  Sex: Female
  Weight: 10 kg

DRUGS (4)
  1. ENB-0040 [Suspect]
     Active Substance: ASFOTASE ALFA
     Indication: HYPOPHOSPHATASIA
     Dosage: 6 MG/KG, 3 X WEEKLY
     Route: 058
     Dates: start: 20160405, end: 20160812
  2. ENB-0040 [Suspect]
     Active Substance: ASFOTASE ALFA
     Indication: HYPERCALCAEMIA
     Dosage: 6 MG/KG, 3 X WEEKLY
     Route: 058
     Dates: start: 20160814
  3. ENB-0040 [Suspect]
     Active Substance: ASFOTASE ALFA
     Dosage: 2 MG/KG, TIW
     Route: 058
  4. ENB-0040 [Suspect]
     Active Substance: ASFOTASE ALFA
     Indication: RICKETS
     Dosage: 1.95 MG/KG, 3 X WEEKLY
     Route: 058

REACTIONS (14)
  - Pneumonia [Recovered/Resolved]
  - Blood alkaline phosphatase increased [Unknown]
  - Upper respiratory tract infection [Recovering/Resolving]
  - Platyspondylia [Unknown]
  - Osteopenia [Unknown]
  - Injection site erythema [Recovered/Resolved]
  - Growth retardation [Unknown]
  - Foot deformity [Unknown]
  - Blood phosphorus increased [Unknown]
  - Rachitic rosary [Recovered/Resolved]
  - Scoliosis [Unknown]
  - Vitamin D decreased [Unknown]
  - Limb deformity [Unknown]
  - Tooth loss [Unknown]

NARRATIVE: CASE EVENT DATE: 20160810
